FAERS Safety Report 8072663-3 (Version None)
Quarter: 2012Q1

REPORT INFORMATION
  Report Type: 
  Country: None (occurrence: None)
  Receive Date: 20120126
  Receipt Date: 20120118
  Transmission Date: 20120608
  Serious: Yes (Hospitalization)
  Sender: FDA-Public Use
  Company Number: US-AMGEN-USASP2012003743

PATIENT
  Age: 60 Year
  Sex: Female

DRUGS (1)
  1. ENBREL [Suspect]
     Indication: RHEUMATOID ARTHRITIS
     Dosage: 50 MG, QWK
     Dates: start: 20080101

REACTIONS (8)
  - BACK PAIN [None]
  - PAIN [None]
  - RASH [None]
  - FOOT DEFORMITY [None]
  - DRUG INEFFECTIVE [None]
  - INJECTION SITE PAIN [None]
  - PAIN IN EXTREMITY [None]
  - ERYTHEMA [None]
